FAERS Safety Report 25032683 (Version 1)
Quarter: 2025Q1

REPORT INFORMATION
  Report Type: Spontaneous
  Country: RO (occurrence: RO)
  Receive Date: 20250303
  Receipt Date: 20250303
  Transmission Date: 20250409
  Serious: Yes (Other)
  Sender: NOVARTIS
  Company Number: RO-002147023-NVSC2025RO033185

PATIENT
  Age: 59 Year

DRUGS (2)
  1. TRAMETINIB [Suspect]
     Active Substance: TRAMETINIB
     Indication: Nodular melanoma
     Route: 065
     Dates: start: 202410, end: 202412
  2. DABRAFENIB [Suspect]
     Active Substance: DABRAFENIB
     Indication: Nodular melanoma
     Route: 065
     Dates: start: 202410, end: 202412

REACTIONS (3)
  - Haematemesis [Unknown]
  - Pyrexia [Unknown]
  - Vomiting [Unknown]

NARRATIVE: CASE EVENT DATE: 20241201
